FAERS Safety Report 7097302-X (Version None)
Quarter: 2010Q4

REPORT INFORMATION
  Report Type: 
  Country: None (occurrence: None)
  Receive Date: 20101103
  Receipt Date: 20101022
  Transmission Date: 20110411
  Serious: Yes (Hospitalization, Other)
  Sender: FDA-Public Use
  Company Number: 020573

PATIENT
  Sex: Female
  Weight: 101.6057 kg

DRUGS (17)
  1. ROTIGOTINE [Suspect]
     Indication: PARKINSON'S DISEASE
     Dosage: (6 MG QD) (6 MG QD)
     Dates: start: 20090928, end: 20091020
  2. ROTIGOTINE [Suspect]
     Indication: PARKINSON'S DISEASE
     Dosage: (6 MG QD) (6 MG QD)
     Dates: start: 20100223
  3. SINEMET [Concomitant]
  4. PRIMIDONE [Concomitant]
  5. PARCOPA [Concomitant]
  6. AZILECT [Concomitant]
  7. AMBIEN [Concomitant]
  8. CARBIDOPA AND LEVODOPA [Concomitant]
  9. COMTAN [Concomitant]
  10. VITAMIN B12 NOS [Concomitant]
  11. CLONAZEPAM [Concomitant]
  12. OXYBUTYNIN [Concomitant]
  13. TRAZODONE HYDROCHLORIDE [Concomitant]
  14. WELLBUTRIN [Concomitant]
  15. GLIPIZIDE [Concomitant]
  16. IRON [Concomitant]
  17. EXELON [Concomitant]

REACTIONS (5)
  - BLOOD CREATININE INCREASED [None]
  - BLOOD UREA INCREASED [None]
  - COLLATERAL CIRCULATION [None]
  - CORONARY ARTERY OCCLUSION [None]
  - CORONARY ARTERY STENOSIS [None]
